FAERS Safety Report 10202813 (Version 2)
Quarter: 2014Q4

REPORT INFORMATION
  Report Type: Spontaneous
  Country: US (occurrence: US)
  Receive Date: 20140528
  Receipt Date: 20141001
  Transmission Date: 20150528
  Serious: Yes (Death, Other)
  Sender: FDA-Public Use
  Company Number: US-FRI-1000067620

PATIENT
  Age: 84 Year
  Sex: Male
  Weight: 83 kg

DRUGS (15)
  1. FERROUS SULFATE [Concomitant]
     Active Substance: FERROUS SULFATE\FERROUS SULFATE, DRIED
     Dosage: 975MG
     Route: 048
     Dates: start: 20090817
  2. LISINOPRIL. [Concomitant]
     Active Substance: LISINOPRIL
     Dosage: 2.5MG
     Route: 048
     Dates: start: 20110311
  3. METFORMIN [Concomitant]
     Active Substance: METFORMIN HYDROCHLORIDE
     Dosage: 1000MG TABLET BY BREAKFAST AND SUPPER
     Route: 048
     Dates: start: 20090727
  4. METOPROLOL TARTRATE. [Concomitant]
     Active Substance: METOPROLOL TARTRATE
     Dosage: 100MG
     Route: 048
     Dates: start: 20100412
  5. PROCRIT [Concomitant]
     Active Substance: ERYTHROPOIETIN
     Dosage: 40000UNIT/ML INJECTION WEEKLY
     Dates: start: 20110513
  6. ZANTAC [Concomitant]
     Active Substance: RANITIDINE HYDROCHLORIDE
     Route: 048
     Dates: start: 20110630
  7. GLIMEPIRIDE. [Concomitant]
     Active Substance: GLIMEPIRIDE
     Dosage: 4MG IN THE MORNING
     Route: 048
     Dates: start: 20060802
  8. NAMENDA [Suspect]
     Active Substance: MEMANTINE HYDROCHLORIDE
     Dosage: 10MG
     Route: 048
     Dates: start: 20100703, end: 20100709
  9. TAMSULOSIN [Concomitant]
     Active Substance: TAMSULOSIN
     Dosage: 0.4MG
     Route: 048
     Dates: start: 20120829
  10. NAMENDA [Suspect]
     Active Substance: MEMANTINE HYDROCHLORIDE
     Indication: DEMENTIA ALZHEIMER^S TYPE
     Dosage: 5MG
     Route: 048
     Dates: start: 20100626, end: 20100702
  11. NAMENDA [Suspect]
     Active Substance: MEMANTINE HYDROCHLORIDE
     Dosage: 5MG IN AM AND 10MG IN PM
     Route: 048
     Dates: start: 20100710, end: 20100716
  12. MECLIZINE [Concomitant]
     Active Substance: MECLIZINE\MECLIZINE HYDROCHLORIDE
     Dosage: 25MG TABLETS THREE TIMES DAILY PRN
     Dates: start: 20120802
  13. ASPIRIN. [Concomitant]
     Active Substance: ASPIRIN
     Dosage: 81MG
     Route: 048
     Dates: start: 20110603
  14. NAMENDA [Suspect]
     Active Substance: MEMANTINE HYDROCHLORIDE
     Dosage: 20MG
     Route: 048
     Dates: start: 20100717
  15. CRESTOR [Concomitant]
     Active Substance: ROSUVASTATIN CALCIUM
     Indication: BLOOD CHOLESTEROL
     Dosage: 10MG PO QHS
     Route: 048
     Dates: start: 20110303

REACTIONS (11)
  - Blood glucose decreased [Unknown]
  - Dysphagia [Unknown]
  - Peripheral vascular disorder [Unknown]
  - Paraesthesia [Unknown]
  - Decreased appetite [Unknown]
  - Confusional state [Unknown]
  - Fatigue [Unknown]
  - Hypoaesthesia [Unknown]
  - Faeces discoloured [Unknown]
  - Pneumonia [Fatal]
  - Asthenia [Unknown]

NARRATIVE: CASE EVENT DATE: 20140417
